FAERS Safety Report 7445593-5 (Version None)
Quarter: 2011Q2

REPORT INFORMATION
  Report Type: 
  Country: None (occurrence: None)
  Receive Date: 20110429
  Receipt Date: 20110427
  Transmission Date: 20111010
  Serious: Yes (Other)
  Sender: FDA-Public Use
  Company Number: US-ROCHE-749867

PATIENT
  Sex: Female
  Weight: 56.7 kg

DRUGS (4)
  1. ACCUTANE [Suspect]
     Route: 065
     Dates: start: 19850101, end: 19850101
  2. PREMARIN [Concomitant]
  3. PREMPRO [Concomitant]
  4. ACCUTANE [Suspect]
     Indication: ACNE
     Route: 065
     Dates: start: 19820601, end: 19820901

REACTIONS (7)
  - RECTAL CANCER [None]
  - COLITIS ULCERATIVE [None]
  - INTESTINAL OBSTRUCTION [None]
  - GASTROINTESTINAL INJURY [None]
  - INFLAMMATORY BOWEL DISEASE [None]
  - COLON CANCER [None]
  - IRRITABLE BOWEL SYNDROME [None]
